FAERS Safety Report 9530231 (Version 3)
Quarter: 2014Q1

REPORT INFORMATION
  Report Type: Spontaneous
  Country: US (occurrence: US)
  Receive Date: 20130917
  Receipt Date: 20140310
  Transmission Date: 20141002
  Serious: Yes (Hospitalization)
  Sender: FDA-Public Use
  Company Number: US-B.I. PHARMACEUTICALS,INC./RIDGEFIELD-2013-BI-28776BP

PATIENT
  Sex: Male
  Weight: 86.18 kg

DRUGS (14)
  1. PRADAXA [Suspect]
     Indication: ATRIAL FIBRILLATION
     Dosage: 300 MG
     Route: 065
     Dates: start: 20110421, end: 20111106
  2. PRADAXA [Suspect]
     Indication: ANTICOAGULANT THERAPY
  3. AMIODARONE [Concomitant]
     Dosage: 200 MG
     Route: 048
  4. ALLOPURINOL [Concomitant]
     Dosage: 300 MG
     Route: 048
  5. PRAVASTATIN [Concomitant]
     Route: 065
     Dates: start: 200903, end: 201212
  6. COMBIVENT [Concomitant]
     Route: 055
  7. CRESTOR [Concomitant]
     Dosage: 20 MG
     Route: 048
  8. ISOSORBIDE DINITRATE [Concomitant]
     Dosage: 60 MG
     Route: 048
  9. LISINOPRIL/HYDROCHLOROTHIAZIDE [Concomitant]
     Route: 048
  10. NIASPAN [Concomitant]
     Dosage: 500 MG
     Route: 048
  11. NIFEDIAC [Concomitant]
     Dosage: 30 MG
     Route: 048
  12. ZANTAC [Concomitant]
     Dosage: 300 MG
     Route: 048
  13. ASPIRIN [Concomitant]
     Dosage: 81 MG
     Route: 048
  14. PANTOPRAZOLE [Concomitant]
     Dosage: 40 MG
     Route: 048

REACTIONS (1)
  - Ischaemic stroke [Unknown]
